FAERS Safety Report 17780764 (Version 1)
Quarter: 2020Q2

REPORT INFORMATION
  Report Type: Spontaneous
  Country: US (occurrence: US)
  Receive Date: 20200513
  Receipt Date: 20200513
  Transmission Date: 20200714
  Serious: Yes (Hospitalization)
  Sender: FDA-Public Use
  Company Number: None

PATIENT
  Age: 49 Year
  Sex: Male

DRUGS (26)
  1. DOXYCL HYC [Concomitant]
  2. SODIUM BICAR [Concomitant]
  3. TORESEMIDE [Concomitant]
     Active Substance: TORSEMIDE
  4. MULTI-VITA MENS [Concomitant]
  5. MUPIROCIN. [Concomitant]
     Active Substance: MUPIROCIN
  6. OXYCODONE AND ACETAMINOPHEN [Concomitant]
     Active Substance: ACETAMINOPHEN\OXYCODONE HYDROCHLORIDE
  7. ALLOPURINOL. [Concomitant]
     Active Substance: ALLOPURINOL
  8. PANTOPRAZOLE [Concomitant]
     Active Substance: PANTOPRAZOLE
  9. PREDNISONE. [Concomitant]
     Active Substance: PREDNISONE
  10. ATORVASTATIN [Concomitant]
     Active Substance: ATORVASTATIN
  11. CARVEDILOL. [Concomitant]
     Active Substance: CARVEDILOL
  12. FISH OIL [Concomitant]
     Active Substance: FISH OIL
  13. FUROSEMIDE. [Concomitant]
     Active Substance: FUROSEMIDE
  14. AMOXICILLIN. [Concomitant]
     Active Substance: AMOXICILLIN
  15. HYDRALAZINE [Concomitant]
     Active Substance: HYDRALAZINE HYDROCHLORIDE
  16. TACROLIMUS. [Concomitant]
     Active Substance: TACROLIMUS
  17. LIPITOR [Concomitant]
     Active Substance: ATORVASTATIN CALCIUM
  18. LISINOPRIL. [Concomitant]
     Active Substance: LISINOPRIL
  19. METOPROLOL. [Concomitant]
     Active Substance: METOPROLOL
  20. PROTONIX [Concomitant]
     Active Substance: PANTOPRAZOLE SODIUM
  21. MYCOPHENOLATE 250MG CAP [Suspect]
     Active Substance: MYCOPHENOLATE MOFETIL
     Indication: RENAL TRANSPLANT
     Dosage: ?          OTHER DOSE:3 TABS;?
     Route: 048
     Dates: start: 20140620
  22. HYDROXYCHLOR [Concomitant]
     Active Substance: HYDROXYCHLOROQUINE
  23. METOPROLO SUC [Concomitant]
  24. VITAMIN D [Concomitant]
     Active Substance: VITAMIN D NOS
  25. ISOSORB MONO [Concomitant]
     Active Substance: ISOSORBIDE MONONITRATE
  26. CEFUROXIME. [Concomitant]
     Active Substance: CEFUROXIME

REACTIONS (1)
  - Cardiac disorder [None]

NARRATIVE: CASE EVENT DATE: 20200512
